FAERS Safety Report 6133547-0 (Version None)
Quarter: 2009Q1

REPORT INFORMATION
  Report Type: 
  Country: None (occurrence: None)
  Receive Date: 20090326
  Receipt Date: 20090303
  Transmission Date: 20090719
  Serious: Yes (Hospitalization)
  Sender: FDA-Public Use
  Company Number: JP-ROCHE-623407

PATIENT
  Age: 70 Year
  Sex: Male

DRUGS (3)
  1. KYTRIL [Suspect]
     Indication: PROPHYLAXIS OF NAUSEA AND VOMITING
     Dosage: DRUG REPORTED: KYTRIL INJECTION, ROUTE REPORTED: INTRAVENOUS (NOT OTHERWISE SPECIFIED)
     Route: 042
  2. LIVALO [Suspect]
     Indication: DRUG USE FOR UNKNOWN INDICATION
     Route: 048
  3. TAXOTERE [Concomitant]
     Route: 041

REACTIONS (1)
  - RHABDOMYOLYSIS [None]
